FAERS Safety Report 8949851 (Version 1)
Quarter: 2012Q4

REPORT INFORMATION
  Report Type: 
  Country: CH (occurrence: CH)
  Receive Date: 20121206
  Receipt Date: 20121206
  Transmission Date: 20130627
  Serious: Yes (Life-Threatening, Hospitalization)
  Sender: FDA-Public Use
  Company Number: CH-TEVA-373536ISR

PATIENT
  Age: 44 Year
  Sex: Male
  Weight: 80 kg

DRUGS (5)
  1. ATENOLOL [Suspect]
     Dosage: 50 Milligram Daily;
     Route: 048
     Dates: end: 20010407
  2. VIRACEPT [Suspect]
     Indication: HIV INFECTION
     Dosage: 100 Milligram Daily;
     Route: 048
     Dates: end: 20010407
  3. COMBIVIR [Suspect]
     Indication: HIV INFECTION
     Dosage: 2 Dosage forms Daily; 300 mg Lamivudine bid/ 600 mg Zidovudin bid
     Route: 048
     Dates: end: 20010407
  4. METHADONE [Suspect]
     Indication: POLYSUBSTANCE DEPENDENCE
     Dosage: 75 Milligram Daily;
     Route: 048
  5. SERESTA [Suspect]
     Indication: INSOMNIA
     Dosage: 50 Milligram Daily;
     Route: 048

REACTIONS (5)
  - Electrocardiogram abnormal [Not Recovered/Not Resolved]
  - Torsade de pointes [Recovered/Resolved with Sequelae]
  - Syncope [Unknown]
  - Bradycardia [Unknown]
  - Ventricular extrasystoles [Not Recovered/Not Resolved]
